FAERS Safety Report 5470445-X (Version None)
Quarter: 2007Q3

REPORT INFORMATION
  Report Type: 
  Country: None (occurrence: None)
  Receive Date: 20070820
  Receipt Date: 20070509
  Transmission Date: 20080115
  Serious: No
  Sender: FDA-Public Use
  Company Number: WAES 0705USA02087

PATIENT
  Sex: Female

DRUGS (2)
  1. JANUVIA [Suspect]
     Indication: TYPE 2 DIABETES MELLITUS
     Dosage: 100  MG/DAILY/PO
     Route: 048
     Dates: start: 20070508
  2. METFORMIN [Concomitant]

REACTIONS (2)
  - NASAL CONGESTION [None]
  - NASOPHARYNGITIS [None]
